FAERS Safety Report 13454009 (Version 1)
Quarter: 2017Q2

REPORT INFORMATION
  Report Type: Spontaneous
  Country: US (occurrence: US)
  Receive Date: 20170418
  Receipt Date: 20170418
  Transmission Date: 20170830
  Serious: No
  Sender: FDA-Public Use
  Company Number: US-ALLERGAN-1675997US

PATIENT
  Sex: Female

DRUGS (2)
  1. LATISSE [Suspect]
     Active Substance: BIMATOPROST
     Indication: HAIR GROWTH ABNORMAL
  2. LATISSE [Suspect]
     Active Substance: BIMATOPROST
     Indication: GROWTH OF EYELASHES
     Dosage: 1 GTT, QHS
     Route: 061
     Dates: start: 20161013, end: 20161102

REACTIONS (4)
  - Rash [Recovered/Resolved]
  - Erythema of eyelid [Recovered/Resolved]
  - Off label use [Unknown]
  - Eyelid irritation [Recovered/Resolved]

NARRATIVE: CASE EVENT DATE: 2016
